FAERS Safety Report 15609507 (Version 4)
Quarter: 2019Q2

REPORT INFORMATION
  Report Type: Spontaneous
  Country: JP (occurrence: JP)
  Receive Date: 20181112
  Receipt Date: 20190409
  Transmission Date: 20190711
  Serious: Yes (Hospitalization, Other)
  Sender: FDA-Public Use
  Company Number: JP-009507513-1811JPN000648J

PATIENT
  Age: 68 Year
  Sex: Male
  Weight: 46 kg

DRUGS (4)
  1. AMARYL [Concomitant]
     Active Substance: GLIMEPIRIDE
     Dosage: 1 MILLIGRAM, QD
     Route: 048
     Dates: start: 20161123
  2. OLMETEC [Concomitant]
     Active Substance: OLMESARTAN MEDOXOMIL
     Dosage: 20 MILLIGRAM, QD
     Route: 048
     Dates: start: 20161122
  3. JANUVIA [Suspect]
     Active Substance: SITAGLIPTIN PHOSPHATE
     Indication: HYPERGLYCAEMIA
     Dosage: 50 MILLIGRAM, QD
     Route: 048
     Dates: start: 20161123, end: 20170111
  4. JANUVIA [Suspect]
     Active Substance: SITAGLIPTIN PHOSPHATE
     Dosage: 100 MILLIGRAM, QD
     Route: 048
     Dates: start: 20170112, end: 20170127

REACTIONS (1)
  - Ileus [Recovering/Resolving]

NARRATIVE: CASE EVENT DATE: 20170127
